FAERS Safety Report 7773017-7 (Version None)
Quarter: 2011Q3

REPORT INFORMATION
  Report Type: 
  Country: None (occurrence: None)
  Receive Date: 20110922
  Receipt Date: 20101104
  Transmission Date: 20111222
  Serious: No
  Sender: FDA-Public Use
  Company Number: US-ASTRAZENECA-2010SE35296

PATIENT
  Age: 54 Year
  Sex: Female
  Weight: 59 kg

DRUGS (7)
  1. SEROQUEL [Suspect]
     Indication: BIPOLAR DISORDER
     Route: 048
     Dates: end: 20100701
  2. SEROQUEL [Suspect]
     Route: 048
  3. CITALOPRAM HYDROBROMIDE [Concomitant]
  4. WELLBUTRIN [Concomitant]
  5. SEROQUEL [Suspect]
     Indication: INSOMNIA
     Route: 048
     Dates: end: 20100701
  6. SEROQUEL [Suspect]
     Route: 048
  7. KLONOPIN [Concomitant]

REACTIONS (8)
  - SUICIDAL IDEATION [None]
  - INCORRECT DOSE ADMINISTERED [None]
  - INSOMNIA [None]
  - BREAST CYST [None]
  - LUNG DISORDER [None]
  - DRUG DOSE OMISSION [None]
  - DEPRESSION [None]
  - SOMNOLENCE [None]
